FAERS Safety Report 19988577 (Version 1)
Quarter: 2021Q4

REPORT INFORMATION
  Report Type: Spontaneous
  Country: US (occurrence: US)
  Receive Date: 20211024
  Receipt Date: 20211024
  Transmission Date: 20220304
  Serious: No
  Sender: FDA-Public Use
  Company Number: US-GLAXOSMITHKLINE-US2021AMR214118

PATIENT
  Age: 72 Year

DRUGS (1)
  1. BREO ELLIPTA [Suspect]
     Active Substance: FLUTICASONE FUROATE\VILANTEROL TRIFENATATE
     Indication: Nasopharyngitis
     Dosage: 1 PUFF(S)

REACTIONS (6)
  - Rash [Unknown]
  - Cough [Unknown]
  - Wheezing [Unknown]
  - Oral candidiasis [Unknown]
  - Dysphonia [Unknown]
  - Product use in unapproved indication [Unknown]
